FAERS Safety Report 5015899-8 (Version None)
Quarter: 2006Q2

REPORT INFORMATION
  Report Type: 
  Country: None (occurrence: None)
  Receive Date: 20060425
  Receipt Date: 20060204
  Transmission Date: 20061013
  Serious: Yes (Other)
  Sender: FDA-Public Use
  Company Number: 219367

PATIENT
  Age: 50 Year
  Sex: Female

DRUGS (1)
  1. XOLAIR [Suspect]
     Indication: ASTHMA
     Dosage: 375 Q2W
     Dates: start: 20040501

REACTIONS (1)
  - BREAST CANCER IN SITU [None]
